FAERS Safety Report 5309583-0 (Version None)
Quarter: 2007Q2

REPORT INFORMATION
  Report Type: 
  Country: None (occurrence: None)
  Receive Date: 20070425
  Receipt Date: 20070425
  Transmission Date: 20071010
  Serious: Yes (Hospitalization)
  Sender: FDA-Public Use
  Company Number: None

PATIENT
  Age: 76 Year
  Sex: Female
  Weight: 63.5 kg

DRUGS (8)
  1. AMMONIUM TETRATHIOMOLYBDATE 40MG CAPSULES [Suspect]
     Indication: COLON CANCER
     Dosage: 280MG DAILY PO
     Route: 048
  2. VERAPAMIL [Concomitant]
  3. HYDROCHLOROTHIAZIDE [Concomitant]
  4. NEURONTIN [Concomitant]
  5. ASCORBIC ACID [Concomitant]
  6. VERAPAMIL EXTENDED-RELEASE [Concomitant]
  7. HYDROCHLOROTHIAZIDE [Concomitant]
  8. NEURONTIN [Concomitant]

REACTIONS (2)
  - ANAEMIA [None]
  - LEUKOPENIA [None]
